FAERS Safety Report 6043805-6 (Version None)
Quarter: 2009Q1

REPORT INFORMATION
  Report Type: 
  Country: None (occurrence: None)
  Receive Date: 20090120
  Receipt Date: 20090116
  Transmission Date: 20090719
  Serious: Yes (Death)
  Sender: FDA-Public Use
  Company Number: PHHY2009RU01775

PATIENT
  Sex: Male

DRUGS (1)
  1. MYFORTIC [Suspect]

REACTIONS (2)
  - COLITIS [None]
  - DEATH [None]
